FAERS Safety Report 10417587 (Version 1)
Quarter: 2014Q3

REPORT INFORMATION
  Report Type: Spontaneous
  Country: US (occurrence: US)
  Receive Date: 20140829
  Receipt Date: 20140829
  Transmission Date: 20150326
  Serious: No
  Sender: FDA-Public Use
  Company Number: US-ASTRAZENECA-2014SE62426

PATIENT
  Sex: Male

DRUGS (4)
  1. NEXIUM [Suspect]
     Active Substance: ESOMEPRAZOLE MAGNESIUM
     Indication: HIATUS HERNIA
     Route: 048
     Dates: end: 2009
  2. NEXIUM [Suspect]
     Active Substance: ESOMEPRAZOLE MAGNESIUM
     Indication: GASTROOESOPHAGEAL REFLUX DISEASE
     Route: 048
     Dates: start: 201408, end: 201408
  3. NEXIUM [Suspect]
     Active Substance: ESOMEPRAZOLE MAGNESIUM
     Indication: GASTROOESOPHAGEAL REFLUX DISEASE
     Route: 048
     Dates: end: 2009
  4. NEXIUM [Suspect]
     Active Substance: ESOMEPRAZOLE MAGNESIUM
     Indication: HIATUS HERNIA
     Route: 048
     Dates: start: 201408, end: 201408

REACTIONS (6)
  - Memory impairment [Unknown]
  - Dyspepsia [Unknown]
  - Gastrointestinal pain [Unknown]
  - Hiatus hernia [Unknown]
  - Bowel movement irregularity [Unknown]
  - Dyspepsia [Unknown]

NARRATIVE: CASE EVENT DATE: 201408
